FAERS Safety Report 8442129-7 (Version None)
Quarter: 2012Q2

REPORT INFORMATION
  Report Type: 
  Country: None (occurrence: None)
  Receive Date: 20120615
  Receipt Date: 20120612
  Transmission Date: 20120825
  Serious: Yes (Other)
  Sender: FDA-Public Use
  Company Number: US-PFIZER INC-2012142919

PATIENT
  Sex: Male

DRUGS (4)
  1. NITROSTAT [Suspect]
     Dosage: UNK
  2. LIPITOR [Suspect]
     Dosage: UNK
  3. ACCUPRIL [Suspect]
     Dosage: UNK
  4. EFFEXOR XR [Suspect]
     Dosage: UNK

REACTIONS (2)
  - NEOPLASM MALIGNANT [None]
  - DIABETES MELLITUS [None]
